FAERS Safety Report 23340382 (Version 1)
Quarter: 2023Q4

REPORT INFORMATION
  Report Type: Spontaneous
  Country: US (occurrence: US)
  Receive Date: 20231227
  Receipt Date: 20231227
  Transmission Date: 20240110
  Serious: Yes (Other)
  Sender: FDA-Public Use
  Company Number: US-BRISTOL-MYERS SQUIBB COMPANY-2023-184003

PATIENT
  Age: 77 Year
  Sex: Female

DRUGS (1)
  1. LENALIDOMIDE [Suspect]
     Active Substance: LENALIDOMIDE
     Indication: Stem cell transplant
     Dosage: TAKE 1 WHOLE CAPSULE BY MOUTH WITH WATER EVERY DAY AS DIRECTED. DO NOT BREAK CHEW OR OPEN
     Route: 048
     Dates: start: 20230630

REACTIONS (2)
  - Product dose omission issue [Unknown]
  - Bacterial infection [Recovered/Resolved]
